FAERS Safety Report 5219837-4 (Version None)
Quarter: 2007Q1

REPORT INFORMATION
  Report Type: 
  Country: None (occurrence: None)
  Receive Date: 20070125
  Receipt Date: 20070117
  Transmission Date: 20070707
  Serious: Yes (Other)
  Sender: FDA-Public Use
  Company Number: DE-PFIZER INC-2007004957

PATIENT
  Sex: Female
  Weight: 77 kg

DRUGS (3)
  1. CABASERIL [Suspect]
     Indication: RESTLESS LEGS SYNDROME
     Dosage: DAILY DOSE:2MG
     Route: 048
     Dates: start: 20030501, end: 20060301
  2. METOPROLOL SUCCINATE [Concomitant]
     Route: 048
  3. LEVOTHYROXINE SODIUM [Concomitant]
     Route: 048

REACTIONS (3)
  - MACULAR DEGENERATION [None]
  - RETINOPATHY [None]
  - VISUAL ACUITY REDUCED [None]
